FAERS Safety Report 10654634 (Version 1)
Quarter: 2014Q4

REPORT INFORMATION
  Report Type: Spontaneous
  Country: US (occurrence: None)
  Receive Date: 20141215
  Receipt Date: 20141215
  Transmission Date: 20150529
  Serious: No
  Sender: FDA-Public Use
  Company Number: None

PATIENT
  Sex: Male

DRUGS (1)
  1. NEXAVAR [Suspect]
     Active Substance: SORAFENIB
     Indication: HEPATIC CANCER
     Route: 048
     Dates: start: 20141118

REACTIONS (10)
  - Rash [None]
  - Abasia [None]
  - Inflammation [None]
  - Skin exfoliation [None]
  - Pain [None]
  - Dysstasia [None]
  - Blister [None]
  - Swelling [None]
  - Erythema [None]
  - Oropharyngeal pain [None]
